FAERS Safety Report 20958173 (Version 1)
Quarter: 2022Q2

REPORT INFORMATION
  Report Type: Spontaneous
  Country: US (occurrence: US)
  Receive Date: 20220614
  Receipt Date: 20220614
  Transmission Date: 20220721
  Serious: No
  Sender: FDA-Public Use
  Company Number: US-PFM-2021-05007

PATIENT
  Sex: Female
  Weight: 7 kg

DRUGS (1)
  1. HEMANGEOL [Suspect]
     Active Substance: PROPRANOLOL HYDROCHLORIDE
     Indication: Haemangioma
     Dosage: 2.6ML TWICE DAILY
     Route: 065

REACTIONS (4)
  - Diarrhoea [Recovered/Resolved]
  - Psychomotor hyperactivity [Not Recovered/Not Resolved]
  - Infantile spitting up [Not Recovered/Not Resolved]
  - Therapeutic product effect incomplete [Unknown]
